FAERS Safety Report 6599734-2 (Version None)
Quarter: 2010Q1

REPORT INFORMATION
  Report Type: 
  Country: None (occurrence: None)
  Receive Date: 20100224
  Receipt Date: 20100216
  Transmission Date: 20100710
  Serious: Yes (Other)
  Sender: FDA-Public Use
  Company Number: US-ELI_LILLY_AND_COMPANY-US201001003751

PATIENT
  Sex: Female

DRUGS (7)
  1. BYETTA [Suspect]
     Indication: TYPE 2 DIABETES MELLITUS
     Dosage: 5 UG, 2/D
     Dates: start: 20090918, end: 20091022
  2. BYETTA [Suspect]
     Dosage: 10 UG, 2/D
     Dates: start: 20091022, end: 20100114
  3. METFORMIN HCL [Concomitant]
     Indication: TYPE 2 DIABETES MELLITUS
  4. ASPIRIN [Concomitant]
     Indication: DIABETES MELLITUS
  5. LIPITOR [Concomitant]
     Indication: BLOOD CHOLESTEROL
  6. SYNTHROID [Concomitant]
     Indication: HYPOTHYROIDISM
  7. FOLIC ACID [Concomitant]

REACTIONS (6)
  - BRONCHITIS BACTERIAL [None]
  - DEHYDRATION [None]
  - HYPERTENSION [None]
  - INFLUENZA LIKE ILLNESS [None]
  - RENAL FAILURE ACUTE [None]
  - SINUS DISORDER [None]
